FAERS Safety Report 4447870-9 (Version None)
Quarter: 2004Q3

REPORT INFORMATION
  Report Type: 
  Country: None (occurrence: None)
  Receive Date: 20040812
  Receipt Date: 20040603
  Transmission Date: 20050211
  Serious: No
  Sender: FDA-Public Use
  Company Number: USA040669144

PATIENT
  Age: 75 Year
  Sex: Male
  Weight: 91 kg

DRUGS (6)
  1. CIALIS [Suspect]
     Dosage: 20 MG/1
     Dates: start: 20040602
  2. WELLBUTRIN [Concomitant]
  3. TRAZADONE (TRAZODONE) [Concomitant]
  4. LIPITOR [Concomitant]
  5. ADVIL [Concomitant]
  6. ULTRAM [Concomitant]

REACTIONS (1)
  - THERAPEUTIC RESPONSE DECREASED [None]
